FAERS Safety Report 7053663-9 (Version None)
Quarter: 2010Q4

REPORT INFORMATION
  Report Type: 
  Country: None (occurrence: None)
  Receive Date: 20101015
  Receipt Date: 20101006
  Transmission Date: 20110411
  Serious: Yes (Hospitalization)
  Sender: FDA-Public Use
  Company Number: 2010MA003376

PATIENT
  Age: 33 Year
  Sex: Male

DRUGS (1)
  1. METOCLOPRAMIDE TABLETS USP, 10 MG (PUREPAC) (METOCLOPRAMIDE) [Suspect]
     Indication: VOMITING
     Dosage: 10 MG;TID;PO
     Route: 048

REACTIONS (10)
  - ASTHENIA [None]
  - C-REACTIVE PROTEIN INCREASED [None]
  - DRY MOUTH [None]
  - ERYTHEMA [None]
  - HYPERGLYCAEMIA [None]
  - HYPERGLYCAEMIC HYPEROSMOLAR NONKETOTIC SYNDROME [None]
  - IMMOBILE [None]
  - JOINT SWELLING [None]
  - LEUKOCYTOSIS [None]
  - RED BLOOD CELL SEDIMENTATION RATE INCREASED [None]
